FAERS Safety Report 13759619 (Version 1)
Quarter: 2017Q3

REPORT INFORMATION
  Report Type: Spontaneous
  Country: DE (occurrence: DE)
  Receive Date: 20170717
  Receipt Date: 20170717
  Transmission Date: 20171127
  Serious: Yes (Other)
  Sender: FDA-Public Use
  Company Number: DE-JNJFOC-20170706880

PATIENT
  Sex: Female

DRUGS (2)
  1. REGAINE FRAUEN LOESUNG [Suspect]
     Active Substance: MINOXIDIL
     Route: 065
  2. REGAINE FRAUEN LOESUNG [Suspect]
     Active Substance: MINOXIDIL
     Indication: PRODUCT USED FOR UNKNOWN INDICATION
     Route: 065
     Dates: start: 20170630

REACTIONS (1)
  - Arrhythmia [Not Recovered/Not Resolved]
